FAERS Safety Report 25042661 (Version 1)
Quarter: 2025Q1

REPORT INFORMATION
  Report Type: Spontaneous
  Country: CN (occurrence: CN)
  Receive Date: 20250305
  Receipt Date: 20250305
  Transmission Date: 20250408
  Serious: Yes (Other)
  Sender: IPSEN BIOPHARMACEUTICALS, INC.
  Company Number: CN-IPSEN Group, Research and Development-2025-05049

PATIENT
  Age: 33 Year
  Sex: Female

DRUGS (3)
  1. LANREOTIDE ACETATE [Suspect]
     Active Substance: LANREOTIDE ACETATE
     Indication: Acromegaly
     Route: 065
     Dates: start: 20240713
  2. OCTREOTIDE [Concomitant]
     Active Substance: OCTREOTIDE
  3. EUTHYROX [Concomitant]
     Active Substance: LEVOTHYROXINE SODIUM

REACTIONS (12)
  - Haematochezia [Unknown]
  - Blood glucose increased [Unknown]
  - Insulin-like growth factor increased [Unknown]
  - Tri-iodothyronine decreased [Unknown]
  - Thyroxine decreased [Unknown]
  - Haemorrhoids [Unknown]
  - Alopecia [Recovering/Resolving]
  - Cardiac disorder [Unknown]
  - Chest discomfort [Unknown]
  - Liver disorder [Unknown]
  - Neck pain [Unknown]
  - Intervertebral disc protrusion [Unknown]

NARRATIVE: CASE EVENT DATE: 20240930
